FAERS Safety Report 15556758 (Version 1)
Quarter: 2018Q4

REPORT INFORMATION
  Report Type: Spontaneous
  Country: US (occurrence: US)
  Receive Date: 20181026
  Receipt Date: 20181026
  Transmission Date: 20190205
  Serious: No
  Sender: FDA-Public Use
  Company Number: US-NEXGEN PHARMA, INC.-2058125

PATIENT
  Age: 42 Year
  Sex: Female

DRUGS (1)
  1. CHENODIOL TABLETS [Suspect]
     Active Substance: CHENODIOL
     Route: 048
     Dates: start: 20141213

REACTIONS (1)
  - Faeces discoloured [None]
